FAERS Safety Report 13789604 (Version 1)
Quarter: 2017Q3

REPORT INFORMATION
  Report Type: Spontaneous
  Country: US (occurrence: US)
  Receive Date: 20170725
  Receipt Date: 20170725
  Transmission Date: 20171127
  Serious: Yes (Hospitalization)
  Sender: FDA-Public Use
  Company Number: US-UNITED THERAPEUTICS-UNT-2017-005798

PATIENT
  Age: 60 Year
  Sex: Female
  Weight: 108.84 kg

DRUGS (2)
  1. REMODULIN [Suspect]
     Active Substance: TREPROSTINIL
     Indication: PULMONARY ARTERIAL HYPERTENSION
     Dosage: 0.045 ?G/KG, CONTINUING
     Route: 058
     Dates: start: 20140304
  2. LETAIRIS [Concomitant]
     Active Substance: AMBRISENTAN
     Indication: PRODUCT USED FOR UNKNOWN INDICATION

REACTIONS (3)
  - Infusion site infection [Recovered/Resolved]
  - Infusion site abscess [Recovered/Resolved]
  - Incisional drainage [Recovered/Resolved]

NARRATIVE: CASE EVENT DATE: 20170418
